FAERS Safety Report 20380964 (Version 1)
Quarter: 2022Q1

REPORT INFORMATION
  Report Type: Report from Study
  Country: IN (occurrence: IN)
  Receive Date: 20220127
  Receipt Date: 20220127
  Transmission Date: 20220423
  Serious: Yes (Death, Hospitalization, Other)
  Sender: FDA-Public Use
  Company Number: IN-JNJFOC-20220142255

PATIENT

DRUGS (8)
  1. DOMPERIDONE [Suspect]
     Active Substance: DOMPERIDONE
     Indication: Product used for unknown indication
     Route: 065
  2. HALOPERIDOL [Suspect]
     Active Substance: HALOPERIDOL
     Indication: Major depression
     Route: 065
  3. RISPERDAL [Suspect]
     Active Substance: RISPERIDONE
     Indication: Major depression
     Route: 065
  4. SIRTURO [Suspect]
     Active Substance: BEDAQUILINE FUMARATE
     Indication: Product used for unknown indication
     Route: 048
  5. ESCITALOPRAM [Interacting]
     Active Substance: ESCITALOPRAM OXALATE
  6. QUETIAPINE [Interacting]
     Active Substance: QUETIAPINE
  7. FLUOXETINE [Interacting]
     Active Substance: FLUOXETINE HYDROCHLORIDE
  8. QUETIAPINE [Interacting]
     Active Substance: QUETIAPINE

REACTIONS (4)
  - Sudden cardiac death [Fatal]
  - Ventricular arrhythmia [Unknown]
  - Electrocardiogram QT prolonged [Unknown]
  - Drug interaction [Unknown]
